FAERS Safety Report 12969421 (Version 1)
Quarter: 2016Q4

REPORT INFORMATION
  Report Type: Spontaneous
  Country: GB (occurrence: GB)
  Receive Date: 20161123
  Receipt Date: 20161123
  Transmission Date: 20170207
  Serious: Yes (Other)
  Sender: FDA-Public Use
  Company Number: GB-MYLANLABS-2016M1050075

PATIENT

DRUGS (7)
  1. AMOROLFINE [Concomitant]
     Active Substance: AMOROLFINE
     Dosage: UNK (ONE OR TWICE WEEKLY)
     Dates: start: 20160928, end: 20160929
  2. PROSCAR [Concomitant]
     Active Substance: FINASTERIDE
     Dosage: 1 DF, QD
     Dates: start: 20141014
  3. RAMIPRIL. [Concomitant]
     Active Substance: RAMIPRIL
     Dosage: 1 DF, QD
     Dates: start: 20141014
  4. AMLODIPINE [Suspect]
     Active Substance: AMLODIPINE BESYLATE
     Dosage: UNK
     Dates: start: 20161107
  5. BENDROFLUMETHIAZIDE [Concomitant]
     Active Substance: BENDROFLUMETHIAZIDE
     Dosage: 1 DF, QD (EACH MORNING.)
     Dates: start: 20161107
  6. FLOMAXTRA XL [Concomitant]
     Active Substance: TAMSULOSIN HYDROCHLORIDE
     Dosage: 1 DF, QD
     Dates: start: 20141014
  7. SPIRONOLACTONE. [Concomitant]
     Active Substance: SPIRONOLACTONE
     Dosage: 1 DF, QD
     Dates: start: 20141014, end: 20160809

REACTIONS (3)
  - Malaise [Unknown]
  - Skin tightness [Unknown]
  - Hallucination [Recovered/Resolved]

NARRATIVE: CASE EVENT DATE: 20161107
